FAERS Safety Report 8074829-5 (Version None)
Quarter: 2012Q1

REPORT INFORMATION
  Report Type: 
  Country: None (occurrence: None)
  Receive Date: 20120126
  Receipt Date: 20120117
  Transmission Date: 20120608
  Serious: Yes (Other)
  Sender: FDA-Public Use
  Company Number: AU-ASTRAZENECA-2011SE67508

PATIENT
  Age: 64 Year
  Sex: Female

DRUGS (4)
  1. ARIMIDEX [Suspect]
     Indication: BREAST CANCER
     Route: 048
     Dates: start: 20080301, end: 20111108
  2. SOLPRIN [Concomitant]
     Route: 048
  3. LIPITOR [Concomitant]
     Dates: end: 20110910
  4. OVESTIN [Concomitant]
     Dosage: 1 MG/G, 1 APPLICATOR NOCTE FOR 3/52, THEN X 2 /WEEK
     Route: 067

REACTIONS (1)
  - BLOOD CREATININE INCREASED [None]
